FAERS Safety Report 9502936 (Version 3)
Quarter: 2013Q4

REPORT INFORMATION
  Report Type: Spontaneous
  Country: DE (occurrence: DE)
  Receive Date: 20130906
  Receipt Date: 20131111
  Transmission Date: 20140711
  Serious: Yes (Other)
  Sender: FDA-Public Use
  Company Number: PHHY2013DE088856

PATIENT
  Age: 31 Year
  Sex: Female
  Weight: 98 kg

DRUGS (8)
  1. GILENYA [Suspect]
     Indication: MULTIPLE SCLEROSIS
     Dosage: 0.5 MG, QD
     Route: 048
     Dates: start: 20130129
  2. RAMIPRIL [Suspect]
     Dates: start: 20130204, end: 20130218
  3. FOSTER [Concomitant]
  4. APSOMOL [Concomitant]
     Indication: ASTHMA
     Dosage: 3.33 UG, UNK
  5. DIANE [Concomitant]
     Indication: CONTRACEPTION
  6. ZOLIM [Concomitant]
  7. BELLA HEXAL [Concomitant]
     Indication: CONTRACEPTION
     Route: 048
  8. VIANI [Concomitant]
     Indication: ASTHMA

REACTIONS (3)
  - Asthma [Not Recovered/Not Resolved]
  - Dyspnoea [Not Recovered/Not Resolved]
  - Abdominal pain upper [Unknown]
